FAERS Safety Report 6845017-2 (Version None)
Quarter: 2010Q3

REPORT INFORMATION
  Report Type: 
  Country: None (occurrence: None)
  Receive Date: 20100715
  Receipt Date: 20100707
  Transmission Date: 20110219
  Serious: Yes (Other)
  Sender: FDA-Public Use
  Company Number: US-BAXTER-2010BH014115

PATIENT
  Sex: Female

DRUGS (1)
  1. DIANEAL [Suspect]
     Indication: PERITONEAL DIALYSIS
     Route: 033

REACTIONS (7)
  - ABDOMINAL DISTENSION [None]
  - HERNIA [None]
  - MALAISE [None]
  - NAUSEA [None]
  - PERITONITIS BACTERIAL [None]
  - PROCEDURAL COMPLICATION [None]
  - PROCEDURAL PAIN [None]
